FAERS Safety Report 16635930 (Version 1)
Quarter: 2019Q3

REPORT INFORMATION
  Report Type: Report from Study
  Country: US (occurrence: ZA)
  Receive Date: 20190726
  Receipt Date: 20190726
  Transmission Date: 20191004
  Serious: Yes (Hospitalization, Other)
  Sender: FDA-Public Use
  Company Number: US-SUNOVION-2019SUN003090

PATIENT
  Sex: Female

DRUGS (3)
  1. INDACATEROL AND GLYCOPYRROLATE [Suspect]
     Active Substance: GLYCOPYRROLATE\INDACATEROL MALEATE
     Indication: ASTHMA
     Dosage: 63 OT, UNK
     Route: 065
  2. COXLEON [Suspect]
     Active Substance: CELECOXIB
     Indication: PAIN
     Dosage: 200 MG, UNK
     Route: 065
  3. THEOPHYLLINE SANDOZ [Suspect]
     Active Substance: THEOPHYLLINE ANHYDROUS
     Indication: ASTHMA
     Dosage: 200 MG, UNK
     Route: 065

REACTIONS (4)
  - Product use in unapproved indication [Unknown]
  - Lower respiratory tract infection [Recovered/Resolved]
  - Dehydration [Recovered/Resolved]
  - Ileus paralytic [Recovered/Resolved]
